FAERS Safety Report 10551632 (Version 1)
Quarter: 2014Q4

REPORT INFORMATION
  Report Type: Spontaneous
  Country: GB (occurrence: GB)
  Receive Date: 20141029
  Receipt Date: 20141029
  Transmission Date: 20150529
  Serious: Yes (Other)
  Sender: FDA-Public Use
  Company Number: GB-TEVA-516900ISR

PATIENT
  Age: 49 Year
  Sex: Male
  Weight: 107.95 kg

DRUGS (4)
  1. PARACETAMOL [Concomitant]
     Active Substance: ACETAMINOPHEN
  2. TAMSULOSIN [Concomitant]
     Active Substance: TAMSULOSIN
  3. NITROFURANTOIN. [Suspect]
     Active Substance: NITROFURANTOIN
     Indication: URINARY TRACT INFECTION
     Dosage: 400 MILLIGRAM DAILY;
     Route: 048
     Dates: start: 20141003, end: 20141006
  4. IBUPROFEN. [Concomitant]
     Active Substance: IBUPROFEN

REACTIONS (10)
  - Chills [Recovered/Resolved]
  - Emotional distress [Recovered/Resolved]
  - Dizziness [Recovered/Resolved]
  - Eye pain [Recovered/Resolved]
  - Fatigue [Recovered/Resolved]
  - Crying [Recovered/Resolved]
  - Asthenia [Recovered/Resolved]
  - Nausea [Recovered/Resolved]
  - Mood swings [Recovered/Resolved]
  - Headache [Recovered/Resolved]

NARRATIVE: CASE EVENT DATE: 20141003
